FAERS Safety Report 5009157-5 (Version None)
Quarter: 2006Q2

REPORT INFORMATION
  Report Type: 
  Country: None (occurrence: None)
  Receive Date: 20060518
  Receipt Date: 20060509
  Transmission Date: 20061013
  Serious: Yes (Hospitalization)
  Sender: FDA-Public Use
  Company Number: S06-USA-01820-01

PATIENT
  Age: 88 Year
  Sex: Male

DRUGS (19)
  1. NAMENDA [Suspect]
     Indication: AMNESIA
     Dosage: 5 MG QD PO
     Route: 048
     Dates: start: 20041201
  2. NAMENDA [Suspect]
     Indication: AMNESIA
     Dosage: 5 MG BID PO
     Route: 048
  3. NAMENDA [Suspect]
     Indication: AMNESIA
     Dosage: 15 MG QD PO
     Route: 048
  4. NAMENDA [Suspect]
     Indication: AMNESIA
     Dosage: 10 MG BID PO
     Route: 048
     Dates: end: 20050501
  5. NAMENDA [Suspect]
     Indication: AMNESIA
     Dosage: 5 MG BID PO
     Route: 048
     Dates: start: 20050501
  6. PAXIL [Suspect]
     Dosage: 10 MG QD PO
     Route: 048
     Dates: end: 20060101
  7. PAXIL [Suspect]
     Dates: start: 20060101, end: 20060418
  8. LISINOPRIL [Concomitant]
  9. LASIX [Concomitant]
  10. ATACAND [Concomitant]
  11. LOPRESSOR [Concomitant]
  12. CLONIDINE [Concomitant]
  13. GLIPIZIDE [Concomitant]
  14. PROSCAR [Concomitant]
  15. FLOMAX [Concomitant]
  16. PLENDIL [Concomitant]
  17. NITROGLYCERIN [Concomitant]
  18. POTASSIUM [Concomitant]
  19. ASPIRIN [Concomitant]

REACTIONS (6)
  - CONFUSIONAL STATE [None]
  - HEART RATE DECREASED [None]
  - HYPERSOMNIA [None]
  - MYOCARDIAL INFARCTION [None]
  - PULMONARY OEDEMA [None]
  - RENAL FAILURE CHRONIC [None]
